FAERS Safety Report 5498196-6 (Version None)
Quarter: 2007Q4

REPORT INFORMATION
  Report Type: 
  Country: None (occurrence: None)
  Receive Date: 20071025
  Receipt Date: 20070411
  Transmission Date: 20080405
  Serious: No
  Sender: FDA-Public Use
  Company Number: A0646791A

PATIENT
  Age: 86 Year
  Sex: Male

DRUGS (10)
  1. ADVAIR DISKUS 100/50 [Suspect]
     Dosage: 100MCG TWICE PER DAY
     Route: 055
     Dates: start: 20070402
  2. AZITHROMYCIN [Concomitant]
  3. LIPITOR [Concomitant]
  4. FUROSEMIDE [Concomitant]
  5. INSULIN [Concomitant]
  6. ALPRAZOLAM [Concomitant]
  7. BENAZAPRIL [Concomitant]
  8. ATENOLOL [Concomitant]
  9. RANITIDINE HCL [Concomitant]
  10. VITAMIN CAP [Concomitant]

REACTIONS (1)
  - DRUG INEFFECTIVE [None]
